FAERS Safety Report 15120426 (Version 1)
Quarter: 2018Q3

REPORT INFORMATION
  Report Type: Spontaneous
  Country: PL (occurrence: PL)
  Receive Date: 20180709
  Receipt Date: 20180709
  Transmission Date: 20181010
  Serious: Yes (Hospitalization, Other)
  Sender: FDA-Public Use
  Company Number: PL-TEVA-2018-PL-922700

PATIENT
  Age: 75 Year
  Sex: Male

DRUGS (9)
  1. ACETYLSALICYLIC ACID [Suspect]
     Active Substance: ASPIRIN
     Indication: TACHYCARDIA PAROXYSMAL
     Dosage: 75 MILLIGRAM DAILY;
     Route: 065
  2. OPACORDEN [Suspect]
     Active Substance: AMIODARONE HYDROCHLORIDE
     Indication: SUPRAVENTRICULAR TACHYCARDIA
  3. AMLODIPINE [Suspect]
     Active Substance: AMLODIPINE BESYLATE
     Indication: TACHYCARDIA PAROXYSMAL
     Dosage: 5 MILLIGRAM DAILY;
     Route: 065
  4. CILAZAPRIL [Suspect]
     Active Substance: CILAZAPRIL ANHYDROUS
     Indication: TACHYCARDIA PAROXYSMAL
     Dosage: 1 MILLIGRAM DAILY;
     Route: 065
  5. ATORVASTATIN [Suspect]
     Active Substance: ATORVASTATIN
     Indication: TACHYCARDIA PAROXYSMAL
     Dosage: 20 MILLIGRAM DAILY;
     Route: 065
  6. OPACORDEN [Suspect]
     Active Substance: AMIODARONE HYDROCHLORIDE
     Indication: TACHYCARDIA PAROXYSMAL
     Dosage: 200 MILLIGRAM DAILY;
     Route: 065
     Dates: end: 200506
  7. ALLOPURINOL. [Suspect]
     Active Substance: ALLOPURINOL
     Indication: TACHYCARDIA PAROXYSMAL
     Dosage: 200 MILLIGRAM DAILY;
     Route: 065
  8. CARVEDILOL. [Suspect]
     Active Substance: CARVEDILOL
     Indication: TACHYCARDIA PAROXYSMAL
     Dosage: 6.25 MILLIGRAM DAILY;
     Route: 065
     Dates: end: 200504
  9. FUROSEMIDE. [Suspect]
     Active Substance: FUROSEMIDE
     Indication: TACHYCARDIA PAROXYSMAL
     Dosage: 40 MILLIGRAM DAILY;
     Route: 065

REACTIONS (2)
  - Chronic kidney disease [Unknown]
  - Disease progression [Unknown]
